FAERS Safety Report 9782938 (Version 2)
Quarter: 2014Q1

REPORT INFORMATION
  Report Type: Spontaneous
  Country: FR (occurrence: FR)
  Receive Date: 20131226
  Receipt Date: 20140102
  Transmission Date: 20141002
  Serious: Yes (Other)
  Sender: FDA-Public Use
  Company Number: FR-UCBSA-107076

PATIENT
  Age: 8 Year
  Sex: Male
  Weight: 39 kg

DRUGS (1)
  1. QUASYM LP [Suspect]
     Dosage: DOSE: 10 MG
     Dates: start: 201312, end: 20131208

REACTIONS (1)
  - Tri-iodothyronine increased [Unknown]
